FAERS Safety Report 7486592-7 (Version None)
Quarter: 2011Q2

REPORT INFORMATION
  Report Type: 
  Country: None (occurrence: None)
  Receive Date: 20110516
  Receipt Date: 20110516
  Transmission Date: 20111010
  Serious: Yes (Other)
  Sender: FDA-Public Use
  Company Number: None

PATIENT
  Age: 17 Year
  Sex: Female
  Weight: 49.8957 kg

DRUGS (1)
  1. METHYLPHENIDATE [Suspect]
     Indication: ATTENTION DEFICIT/HYPERACTIVITY DISORDER
     Dates: start: 20110514, end: 20110514

REACTIONS (2)
  - PRODUCT SUBSTITUTION ISSUE [None]
  - URTICARIA [None]
